FAERS Safety Report 18317986 (Version 1)
Quarter: 2020Q3

REPORT INFORMATION
  Report Type: Spontaneous
  Country: US (occurrence: US)
  Receive Date: 20200925
  Receipt Date: 20200925
  Transmission Date: 20201103
  Serious: Yes (Hospitalization, Disabling, Other)
  Sender: FDA-Public Use
  Company Number: None

PATIENT
  Age: 52 Year
  Sex: Female
  Weight: 51.75 kg

DRUGS (10)
  1. ZINC. [Concomitant]
     Active Substance: ZINC
  2. VITAMIN C [Concomitant]
     Active Substance: ASCORBIC ACID
  3. DAILY VITAMIN [Concomitant]
     Active Substance: VITAMINS
  4. TOPIRAMATE. [Suspect]
     Active Substance: TOPIRAMATE
     Indication: HEADACHE
     Dosage: ?          QUANTITY:1 TABLET(S);?
     Route: 048
     Dates: start: 20180925, end: 20180925
  5. AUGMENTIN [Suspect]
     Active Substance: AMOXICILLIN\CLAVULANATE POTASSIUM
  6. METHAZOLAMDE 100MG [Concomitant]
  7. PROGESTERONE. [Concomitant]
     Active Substance: PROGESTERONE
  8. VIVELLE [Concomitant]
     Active Substance: ESTRADIOL
  9. FISH OIL [Concomitant]
     Active Substance: FISH OIL
  10. VITAMIN D [Concomitant]
     Active Substance: VITAMIN D NOS

REACTIONS (14)
  - Angle closure glaucoma [None]
  - Cognitive disorder [None]
  - Paraesthesia [None]
  - Idiopathic intracranial hypertension [None]
  - Drug hypersensitivity [None]
  - Insomnia [None]
  - Seizure [None]
  - Headache [None]
  - Feeling abnormal [None]
  - Loss of consciousness [None]
  - Middle insomnia [None]
  - Dry mouth [None]
  - Dry eye [None]
  - Heart rate increased [None]

NARRATIVE: CASE EVENT DATE: 20180926
